FAERS Safety Report 5269123-1 (Version None)
Quarter: 2007Q1

REPORT INFORMATION
  Report Type: 
  Country: None (occurrence: None)
  Receive Date: 20070314
  Receipt Date: 20070228
  Transmission Date: 20070707
  Serious: Yes (Hospitalization)
  Sender: FDA-Public Use
  Company Number: 200601IM000118

PATIENT
  Age: 62 Year
  Sex: Female
  Weight: 63.5036 kg

DRUGS (9)
  1. INTERFERON GAMMA-1B [Suspect]
     Indication: IDIOPATHIC PULMONARY FIBROSIS
     Dosage: 200 UG, TIW, SUBCUTANEOUS
     Route: 058
     Dates: start: 20050425
  2. PREMARIN [Concomitant]
  3. ACIPHEX [Concomitant]
  4. ADVAIR DISKUS 100/50 [Concomitant]
  5. COMBIVENT [Concomitant]
  6. ASCORBIC ACID [Concomitant]
  7. GLUCOSAMINE [Concomitant]
  8. NASACORT [Concomitant]
  9. BENADRYL [Concomitant]

REACTIONS (1)
  - OSTEOARTHRITIS [None]
